FAERS Safety Report 24302278 (Version 3)
Quarter: 2025Q2

REPORT INFORMATION
  Report Type: Spontaneous
  Country: GB (occurrence: GB)
  Receive Date: 20240910
  Receipt Date: 20250530
  Transmission Date: 20250716
  Serious: Yes (Life-Threatening, Hospitalization, Other)
  Sender: PFIZER
  Company Number: GB-009507513-2311GBR011281

PATIENT
  Age: 67 Year
  Sex: Female
  Weight: 89 kg

DRUGS (41)
  1. CARBOPLATIN [Suspect]
     Active Substance: CARBOPLATIN
     Indication: Diffuse large B-cell lymphoma
     Dates: start: 20231117, end: 20231117
  2. CARBOPLATIN [Suspect]
     Active Substance: CARBOPLATIN
     Dates: start: 20231208, end: 20231208
  3. CARBOPLATIN [Suspect]
     Active Substance: CARBOPLATIN
     Dates: start: 20231230, end: 20231230
  4. CYTARABINE [Suspect]
     Active Substance: CYTARABINE
     Indication: Diffuse large B-cell lymphoma
     Dates: start: 20240209, end: 20240214
  5. RITUXIMAB [Suspect]
     Active Substance: RITUXIMAB
     Indication: Diffuse large B-cell lymphoma
     Dates: start: 20231116, end: 20231116
  6. RITUXIMAB [Suspect]
     Active Substance: RITUXIMAB
     Dates: start: 20231207, end: 20231207
  7. RITUXIMAB [Suspect]
     Active Substance: RITUXIMAB
     Dates: start: 20231229, end: 20231229
  8. SIMVASTATIN [Suspect]
     Active Substance: SIMVASTATIN
     Indication: Diffuse large B-cell lymphoma
     Dosage: 40 MG, 1X/DAY
     Route: 048
     Dates: start: 20130508, end: 20240820
  9. PEMBROLIZUMAB [Suspect]
     Active Substance: PEMBROLIZUMAB
     Indication: Diffuse large B-cell lymphoma
     Dates: start: 20231116, end: 20231116
  10. PEMBROLIZUMAB [Suspect]
     Active Substance: PEMBROLIZUMAB
     Dates: start: 20231124
  11. PEMBROLIZUMAB [Suspect]
     Active Substance: PEMBROLIZUMAB
     Dates: start: 20231207, end: 20231207
  12. PEMBROLIZUMAB [Suspect]
     Active Substance: PEMBROLIZUMAB
     Dates: start: 20231229, end: 20231229
  13. IFOSFAMIDE [Suspect]
     Active Substance: IFOSFAMIDE
     Indication: Diffuse large B-cell lymphoma
     Dates: start: 20231117, end: 20231117
  14. IFOSFAMIDE [Suspect]
     Active Substance: IFOSFAMIDE
     Dates: start: 20231210, end: 20231210
  15. IFOSFAMIDE [Suspect]
     Active Substance: IFOSFAMIDE
     Dates: start: 20240101, end: 20240101
  16. ETOPOSIDE [Suspect]
     Active Substance: ETOPOSIDE
     Indication: Diffuse large B-cell lymphoma
     Dates: start: 20231118, end: 20231118
  17. ETOPOSIDE [Suspect]
     Active Substance: ETOPOSIDE
     Dates: start: 20231210, end: 20231210
  18. ETOPOSIDE [Suspect]
     Active Substance: ETOPOSIDE
     Dates: start: 20231231, end: 20231231
  19. ETOPOSIDE [Suspect]
     Active Substance: ETOPOSIDE
     Dates: start: 20240209, end: 20240214
  20. CARMUSTINE [Suspect]
     Active Substance: CARMUSTINE
     Indication: Diffuse large B-cell lymphoma
     Dates: start: 20240209, end: 20240214
  21. PLERIXAFOR [Suspect]
     Active Substance: PLERIXAFOR
     Indication: Diffuse large B-cell lymphoma
     Dates: start: 20240110, end: 20240111
  22. GRANULOCYTE COLONY-STIMULATING FACTOR NOS [Suspect]
     Active Substance: GRANULOCYTE COLONY-STIMULATING FACTOR NOS
     Indication: Diffuse large B-cell lymphoma
     Dates: start: 20231124, end: 20240226
  23. ACETAMINOPHEN [Suspect]
     Active Substance: ACETAMINOPHEN
     Indication: Diffuse large B-cell lymphoma
     Dosage: 1000 MG, 1X/DAY
     Route: 048
     Dates: start: 20190520
  24. ACETAMINOPHEN [Suspect]
     Active Substance: ACETAMINOPHEN
     Dosage: 1000 MG, 2X/DAY
     Route: 048
     Dates: start: 20240617
  25. DAPAGLIFLOZIN [Concomitant]
     Active Substance: DAPAGLIFLOZIN
     Dosage: 10 MG, 1X/DAY
     Route: 048
     Dates: start: 20210113, end: 20240213
  26. GLUCOPHAGE [Concomitant]
     Active Substance: METFORMIN HYDROCHLORIDE
     Dosage: 1000 MG, 1X/DAY
     Route: 048
     Dates: start: 20161124, end: 20240301
  27. INDAPAMIDE [Concomitant]
     Active Substance: INDAPAMIDE
     Dosage: 2.5 MG, 1X/DAY
     Route: 048
     Dates: start: 20180730, end: 20240208
  28. NOVORAPID [Concomitant]
     Active Substance: INSULIN ASPART
     Route: 058
     Dates: start: 20070313, end: 20240303
  29. OMEPRAZOLE [Concomitant]
     Active Substance: OMEPRAZOLE
     Dosage: 20 MG, 1X/DAY
     Route: 048
     Dates: start: 20230821, end: 20240303
  30. TRESIBA [Concomitant]
     Active Substance: INSULIN DEGLUDEC
     Route: 058
     Dates: start: 20181129, end: 20240301
  31. CHOLECALCIFEROL [Concomitant]
     Active Substance: CHOLECALCIFEROL
     Dates: start: 20240208, end: 20240303
  32. ACYCLOVIR [Concomitant]
     Active Substance: ACYCLOVIR
  33. COTRIMOXAZOLE [Concomitant]
     Active Substance: SULFAMETHOXAZOLE\TRIMETHOPRIM
  34. CODEINE PHOSPHATE [Concomitant]
     Active Substance: CODEINE PHOSPHATE
  35. FAMOTIDINE [Concomitant]
     Active Substance: FAMOTIDINE
  36. BUTYLSCOPOLAMINE BROMIDE [Concomitant]
     Active Substance: BUTYLSCOPOLAMINE BROMIDE
  37. LOPERAMIDE [Concomitant]
     Active Substance: LOPERAMIDE
  38. METFORMIN [Concomitant]
     Active Substance: METFORMIN HYDROCHLORIDE
  39. ONDANSETRON HYDROCHLORIDE [Concomitant]
     Active Substance: ONDANSETRON HYDROCHLORIDE
  40. OXETACAINE [Concomitant]
     Active Substance: OXETHAZAINE
  41. POTASSIUM [Concomitant]
     Active Substance: POTASSIUM

REACTIONS (44)
  - Acute respiratory distress syndrome [Not Recovered/Not Resolved]
  - Acute kidney injury [Recovered/Resolved with Sequelae]
  - Dyspnoea [Recovered/Resolved]
  - Electrolyte imbalance [Unknown]
  - Nasopharyngitis [Unknown]
  - Mobility decreased [Not Recovered/Not Resolved]
  - Alanine aminotransferase increased [Not Recovered/Not Resolved]
  - Colitis [Recovered/Resolved with Sequelae]
  - Diarrhoea [Recovered/Resolved]
  - Abdominal pain [Unknown]
  - Nausea [Unknown]
  - Vomiting [Unknown]
  - Renal impairment [Unknown]
  - Pneumonia [Unknown]
  - Blood albumin increased [Unknown]
  - Blood creatine phosphokinase increased [Recovering/Resolving]
  - Rhinitis [Unknown]
  - Dyspnoea exertional [Unknown]
  - C-reactive protein increased [Unknown]
  - Pulmonary function test decreased [Unknown]
  - Pleural effusion [Unknown]
  - Ejection fraction decreased [Unknown]
  - Activated partial thromboplastin time ratio decreased [Unknown]
  - Blood fibrinogen increased [Unknown]
  - Activated partial thromboplastin time shortened [Unknown]
  - Haemoglobin decreased [Unknown]
  - Blood magnesium decreased [Unknown]
  - Mean cell haemoglobin increased [Unknown]
  - Neutrophil count decreased [Unknown]
  - Haematocrit decreased [Unknown]
  - Platelet count decreased [Unknown]
  - Red blood cell count decreased [Unknown]
  - Red cell distribution width increased [Unknown]
  - Protein total decreased [Unknown]
  - Blood urea increased [Unknown]
  - White blood cell count decreased [Unknown]
  - Amylase decreased [Unknown]
  - Lymphocyte count decreased [Unknown]
  - Mean cell haemoglobin concentration decreased [Unknown]
  - Mean cell volume increased [Unknown]
  - Bone marrow disorder [Unknown]
  - Vitamin D decreased [Not Recovered/Not Resolved]
  - Muscular weakness [Unknown]
  - Off label use [Unknown]

NARRATIVE: CASE EVENT DATE: 20231101
